FAERS Safety Report 25728533 (Version 2)
Quarter: 2025Q3

REPORT INFORMATION
  Report Type: Spontaneous
  Country: IN (occurrence: IN)
  Receive Date: 20250826
  Receipt Date: 20250903
  Transmission Date: 20251021
  Serious: Yes (Other)
  Sender: PFIZER
  Company Number: IN-PFIZER INC-PV202500102434

PATIENT
  Age: 43 Year
  Sex: Male

DRUGS (1)
  1. VORICONAZOLE [Suspect]
     Active Substance: VORICONAZOLE
     Indication: Aspergillus infection
     Dosage: 200 MG, 2X/DAY
     Route: 048

REACTIONS (3)
  - Photosensitivity reaction [Unknown]
  - Cheilitis [Unknown]
  - Skin hyperpigmentation [Unknown]
